FAERS Safety Report 5615993-4 (Version None)
Quarter: 2008Q1

REPORT INFORMATION
  Report Type: 
  Country: None (occurrence: None)
  Receive Date: 20080206
  Receipt Date: 20080205
  Transmission Date: 20080703
  Serious: Yes (Life-Threatening, Other)
  Sender: FDA-Public Use
  Company Number: US-BOEHRINGER INGELHEIM GMBH, GERMANY-2007-BP-23147BP

PATIENT
  Sex: Male

DRUGS (6)
  1. FLOMAX [Suspect]
     Indication: NEPHROLITHIASIS
     Dates: start: 20060808
  2. OXYCODONE AND ACETAMINOPHEN [Concomitant]
  3. HYDROMORPHONE HCL [Concomitant]
  4. ACETAMINOPHEN AND HYDROCODONE BITARTRATE [Concomitant]
  5. INDOMETHACIN [Concomitant]
  6. MEPERIDINE [Concomitant]

REACTIONS (3)
  - HEART RATE ABNORMAL [None]
  - HEART RATE DECREASED [None]
  - LOSS OF CONSCIOUSNESS [None]
